FAERS Safety Report 8128769-3 (Version None)
Quarter: 2012Q1

REPORT INFORMATION
  Report Type: 
  Country: None (occurrence: None)
  Receive Date: 20120210
  Receipt Date: 20120126
  Transmission Date: 20120608
  Serious: Yes (Other)
  Sender: FDA-Public Use
  Company Number: US-WATSON-2012-02002

PATIENT
  Age: 57 Year
  Sex: Male

DRUGS (3)
  1. MYCOPHENOLATE MEFETIL [Suspect]
     Indication: LIVER TRANSPLANT
  2. PREDNISONE TAB [Suspect]
     Indication: LIVER TRANSPLANT
     Dosage: 5 MG DAILY
  3. TACROLIMUS [Suspect]
     Indication: LIVER TRANSPLANT

REACTIONS (2)
  - CRYPTOCOCCOSIS [None]
  - IMMUNE RECONSTITUTION SYNDROME [None]
